FAERS Safety Report 10582405 (Version 1)
Quarter: 2014Q4

REPORT INFORMATION
  Report Type: Spontaneous
  Country: CN (occurrence: CN)
  Receive Date: 20141113
  Receipt Date: 20141113
  Transmission Date: 20150529
  Serious: Yes (Hospitalization, Other)
  Sender: FDA-Public Use
  Company Number: PHHY2014CN145663

PATIENT
  Age: 36 Year
  Sex: Male

DRUGS (1)
  1. TELBIVUDINE [Suspect]
     Active Substance: TELBIVUDINE
     Indication: HEPATITIS B
     Dosage: 600 MG, QN
     Route: 065

REACTIONS (9)
  - Pain in extremity [Unknown]
  - Lactic acidosis [Unknown]
  - Vomiting [Unknown]
  - Blood creatine phosphokinase increased [Unknown]
  - Mitochondrial myopathy [Unknown]
  - Abdominal distension [Unknown]
  - Nasopharyngitis [Unknown]
  - Myopathy [Unknown]
  - Nausea [Unknown]
